FAERS Safety Report 20906195 (Version 1)
Quarter: 2022Q2

REPORT INFORMATION
  Report Type: Spontaneous
  Country: IN (occurrence: IN)
  Receive Date: 20220602
  Receipt Date: 20220602
  Transmission Date: 20220721
  Serious: No
  Sender: FDA-Public Use
  Company Number: IN-LUPIN PHARMACEUTICALS INC.-2022-08054

PATIENT
  Age: 40 Year
  Sex: Male

DRUGS (1)
  1. CLOBETASOL PROPIONATE [Suspect]
     Active Substance: CLOBETASOL PROPIONATE
     Indication: Product used for unknown indication
     Dosage: UNK, CLOBETASOL PROPIONATE 0.05% CREAM, FREQUENT APPLICATION OF NONPRESCRIPTION CREAM TO THE AFFECTE
     Route: 061

REACTIONS (2)
  - Dermatosis [Recovering/Resolving]
  - Intentional product misuse [Unknown]
